FAERS Safety Report 10866229 (Version 1)
Quarter: 2015Q1

REPORT INFORMATION
  Report Type: Spontaneous
  Country: DE (occurrence: None)
  Receive Date: 20150219
  Receipt Date: 20150219
  Transmission Date: 20150721
  Serious: Yes (Other)
  Sender: FDA-Public Use
  Company Number: IPC201502-000076

PATIENT
  Sex: Female

DRUGS (3)
  1. HYDROCHLOROTHIAZIDE. [Concomitant]
     Active Substance: HYDROCHLOROTHIAZIDE
  2. VALSARTAN. [Concomitant]
     Active Substance: VALSARTAN
  3. ALLOPURINOL (ALLOPURINOL) (ALLOPURINOL) [Suspect]
     Active Substance: ALLOPURINOL

REACTIONS (2)
  - Exposure during pregnancy [None]
  - Abortion spontaneous [None]
